FAERS Safety Report 14472799 (Version 1)
Quarter: 2018Q1

REPORT INFORMATION
  Report Type: Spontaneous
  Country: US (occurrence: US)
  Receive Date: 20180201
  Receipt Date: 20180201
  Transmission Date: 20180509
  Serious: No
  Sender: FDA-Public Use
  Company Number: US-KADMON PHARMACEUTICALS, LLC-KAD201709-001018

PATIENT
  Age: 56 Year
  Sex: Male

DRUGS (3)
  1. RIBASPHERE RIBAPAK [Suspect]
     Active Substance: RIBAVIRIN
     Indication: HEPATITIS C
     Route: 048
     Dates: start: 20140905
  2. PEGINTERFERON ALFA-2A. [Suspect]
     Active Substance: PEGINTERFERON ALFA-2A
     Indication: HEPATITIS C
     Dosage: INJECTION
     Route: 058
     Dates: start: 20140905
  3. SOFOSBUVIR [Suspect]
     Active Substance: SOFOSBUVIR
     Indication: HEPATITIS C
     Route: 048
     Dates: start: 20140905

REACTIONS (9)
  - Confusional state [Unknown]
  - Depression [Unknown]
  - Pain [Unknown]
  - Decreased appetite [Unknown]
  - Lethargy [Unknown]
  - Back pain [Unknown]
  - Mouth ulceration [Not Recovered/Not Resolved]
  - Fatigue [Unknown]
  - Influenza [Unknown]
